FAERS Safety Report 11868138 (Version 2)
Quarter: 2016Q1

REPORT INFORMATION
  Report Type: Spontaneous
  Country: US (occurrence: US)
  Receive Date: 20151224
  Receipt Date: 20160108
  Transmission Date: 20160526
  Serious: Yes (Death, Hospitalization, Other)
  Sender: FDA-Public Use
  Company Number: US-PRINSTON PHARMACEUTICAL INC.-2015PRN00150

PATIENT
  Age: 68 Year
  Sex: Male
  Weight: 155.1 kg

DRUGS (10)
  1. PIOGLITAZONE HCL [Suspect]
     Active Substance: PIOGLITAZONE
     Dosage: 45 MG, UNK
  2. LIPITOR [Suspect]
     Active Substance: ATORVASTATIN CALCIUM
     Dosage: 40 MG, 1X/DAY
  3. MECLIZINE [Suspect]
     Active Substance: MECLIZINE HYDROCHLORIDE
     Dosage: 25 MG, UNK
  4. BENAZEPRIL [Suspect]
     Active Substance: BENAZEPRIL HYDROCHLORIDE
     Indication: HYPERTENSION
     Dosage: UNK
  5. SYNTHROID [Suspect]
     Active Substance: LEVOTHYROXINE SODIUM
     Dosage: 175 ?G, UNK
  6. METFORMIN [Suspect]
     Active Substance: METFORMIN HYDROCHLORIDE
     Dosage: 850 MG, UNK
  7. SPIRONOLACTONE. [Suspect]
     Active Substance: SPIRONOLACTONE
     Dosage: 100 MG, UNK
  8. POTASSIUM CL ER [Suspect]
     Active Substance: POTASSIUM CHLORIDE
     Dosage: 20 MEQ, UNK
  9. FUROSEMIDE. [Suspect]
     Active Substance: FUROSEMIDE
     Dosage: 40 MG, UNK
  10. NIFEDIPINE ER [Suspect]
     Active Substance: NIFEDIPINE
     Dosage: 30 MG, UNK

REACTIONS (14)
  - Intestinal perforation [Fatal]
  - Abdominal pain upper [Fatal]
  - Presyncope [Unknown]
  - Polyp [Unknown]
  - Vertigo [Unknown]
  - Balance disorder [Unknown]
  - Insomnia [Unknown]
  - Fall [Unknown]
  - Weight increased [Unknown]
  - Liver function test abnormal [Unknown]
  - Sepsis [Fatal]
  - Hypotension [Fatal]
  - Asthenia [Unknown]
  - Fluid retention [Fatal]

NARRATIVE: CASE EVENT DATE: 201310
